FAERS Safety Report 7715330-5 (Version None)
Quarter: 2011Q3

REPORT INFORMATION
  Report Type: 
  Country: None (occurrence: None)
  Receive Date: 20110829
  Receipt Date: 20110822
  Transmission Date: 20111222
  Serious: Yes (Other)
  Sender: FDA-Public Use
  Company Number: US-SANOFI-AVENTIS-2011SA042807

PATIENT
  Age: 80 Year
  Sex: Female
  Weight: 97.52 kg

DRUGS (21)
  1. ULTRACET [Concomitant]
  2. MULTAQ [Suspect]
     Route: 048
     Dates: start: 20110425, end: 20110710
  3. IRON/VITAMINS NOS [Concomitant]
  4. GABAPENTIN [Concomitant]
  5. TRAMADOL HCL [Concomitant]
  6. ESOMEPRAZOLE MAGNESIUM [Concomitant]
     Dosage: TAKEN IN THE MORNING
  7. HYDROCHLOROTHIAZIDE [Concomitant]
  8. OMEPRAZOLE [Concomitant]
  9. THYROID TAB [Concomitant]
     Dosage: TAKEN IN THE MORNING
  10. WARFARIN SODIUM [Concomitant]
     Indication: THROMBOSIS PROPHYLAXIS
  11. GLUCOSAMINE [Concomitant]
  12. LOTENSIN HCT [Concomitant]
     Dosage: 20/ 12.5 MG
  13. NITROSTAT [Concomitant]
  14. LASIX [Concomitant]
  15. CALCIUM CARBONATE [Concomitant]
  16. CRESTOR [Concomitant]
  17. POTASSIUM CHLORIDE [Concomitant]
  18. NEURONTIN [Concomitant]
     Dosage: HALF A NIGHT
  19. ASPIRIN [Concomitant]
  20. MULTAQ [Suspect]
     Indication: ATRIAL FIBRILLATION
     Route: 048
     Dates: start: 20110425, end: 20110710
  21. GLIPIZIDE [Concomitant]
     Dosage: TAKEN IN THE MORNING

REACTIONS (7)
  - ATRIAL FIBRILLATION [None]
  - HEART RATE IRREGULAR [None]
  - FEELING ABNORMAL [None]
  - TACHYPNOEA [None]
  - DYSPNOEA [None]
  - SLEEP DISORDER [None]
  - CONDITION AGGRAVATED [None]
